FAERS Safety Report 17475374 (Version 1)
Quarter: 2020Q1

REPORT INFORMATION
  Report Type: Report from Study
  Country: CO (occurrence: CO)
  Receive Date: 20200228
  Receipt Date: 20200228
  Transmission Date: 20200409
  Serious: Yes (Other)
  Sender: FDA-Public Use
  Company Number: CO-JNJFOC-20190241485

PATIENT
  Sex: Female
  Weight: 71 kg

DRUGS (4)
  1. SIMPONI [Suspect]
     Active Substance: GOLIMUMAB
     Route: 058
     Dates: start: 20190130, end: 20190710
  2. METHOTREXATE. [Concomitant]
     Active Substance: METHOTREXATE
     Indication: RHEUMATOID ARTHRITIS
     Route: 050
     Dates: end: 20190710
  3. SIMPONI [Suspect]
     Active Substance: GOLIMUMAB
     Indication: RHEUMATOID ARTHRITIS
     Dosage: THE MOST RECENT DRUG ADMINISTRATION WAS PERFORMED ON 10-JUL-2019
     Route: 058
     Dates: start: 20160316, end: 20180301
  4. SIMPONI [Suspect]
     Active Substance: GOLIMUMAB
     Route: 058
     Dates: start: 20180615, end: 20180816

REACTIONS (6)
  - Product dose omission [Unknown]
  - Drug ineffective [Not Recovered/Not Resolved]
  - Vein disorder [Not Recovered/Not Resolved]
  - Meniscus injury [Not Recovered/Not Resolved]
  - Influenza [Not Recovered/Not Resolved]
  - Rheumatoid arthritis [Not Recovered/Not Resolved]

NARRATIVE: CASE EVENT DATE: 2018
